FAERS Safety Report 24968592 (Version 9)
Quarter: 2025Q4

REPORT INFORMATION
  Report Type: Report from Study
  Country: IL (occurrence: IL)
  Receive Date: 20250214
  Receipt Date: 20251221
  Transmission Date: 20260118
  Serious: Yes (Hospitalization, Other)
  Sender: RECORDATI
  Company Number: IL-Medison-000619

PATIENT
  Sex: Male

DRUGS (10)
  1. ISTURISA [Suspect]
     Active Substance: OSILODROSTAT PHOSPHATE
     Indication: Pituitary-dependent Cushing^s syndrome
     Dosage: 7 MILLIGRAM, BID (FOR 1 MG LOT)
     Route: 048
     Dates: start: 20240210, end: 2025
  2. ISTURISA [Suspect]
     Active Substance: OSILODROSTAT PHOSPHATE
     Dosage: 7 MILLIGRAM, BID (FOR 5 MG LOT)
     Route: 048
     Dates: start: 20240210, end: 2025
  3. ISTURISA [Suspect]
     Active Substance: OSILODROSTAT PHOSPHATE
     Dosage: 6 MG, BID (FOR 1 MG LOT)
     Route: 048
     Dates: start: 2025, end: 202502
  4. ISTURISA [Suspect]
     Active Substance: OSILODROSTAT PHOSPHATE
     Dosage: 6 MG, BID (FOR 5 MG LOT)
     Route: 048
     Dates: start: 2025, end: 202502
  5. ISTURISA [Suspect]
     Active Substance: OSILODROSTAT PHOSPHATE
     Dosage: 3 MILLIGRAM, BID
     Route: 048
     Dates: start: 202502, end: 202502
  6. ISTURISA [Suspect]
     Active Substance: OSILODROSTAT PHOSPHATE
     Dosage: 4 MILLIGRAM, BID (1 MG TABLET)
     Route: 048
     Dates: start: 202502, end: 202505
  7. ISTURISA [Suspect]
     Active Substance: OSILODROSTAT PHOSPHATE
     Dosage: 3 MILLIGRAM, Q12H
     Route: 048
     Dates: start: 202505, end: 2025
  8. ISTURISA [Suspect]
     Active Substance: OSILODROSTAT PHOSPHATE
     Dosage: 7 MILLIGRAM, Q12H
     Route: 048
     Dates: start: 2025, end: 2025
  9. ISTURISA [Suspect]
     Active Substance: OSILODROSTAT PHOSPHATE
     Dosage: 2 MILLIGRAM, BID
     Route: 048
     Dates: start: 2025, end: 2025
  10. ISTURISA [Suspect]
     Active Substance: OSILODROSTAT PHOSPHATE
     Dosage: DOSE DECREASED
     Route: 048
     Dates: start: 2025

REACTIONS (11)
  - Intraocular pressure increased [Not Recovered/Not Resolved]
  - Haemorrhage [Not Recovered/Not Resolved]
  - Loss of consciousness [Recovering/Resolving]
  - Eye swelling [Not Recovered/Not Resolved]
  - Skin discolouration [Not Recovered/Not Resolved]
  - Asthenia [Recovering/Resolving]
  - Headache [Not Recovered/Not Resolved]
  - Cortisol decreased [Unknown]
  - Malaise [Recovering/Resolving]
  - Asthenia [Recovering/Resolving]
  - Disease progression [Recovered/Resolved]

NARRATIVE: CASE EVENT DATE: 20240101
